FAERS Safety Report 10468840 (Version 8)
Quarter: 2015Q2

REPORT INFORMATION
  Report Type: Spontaneous
  Country: ES (occurrence: ES)
  Receive Date: 20140923
  Receipt Date: 20150513
  Transmission Date: 20150821
  Serious: Yes (Other)
  Sender: FDA-Public Use
  Company Number: ES-AMGEN-ESPSP2014046372

PATIENT
  Age: 51 Year
  Sex: Female

DRUGS (7)
  1. ENBREL [Suspect]
     Active Substance: ETANERCEPT
     Dosage: UNK
     Route: 065
  2. ARAVA [Concomitant]
     Active Substance: LEFLUNOMIDE
     Indication: ANKYLOSING SPONDYLITIS
     Dosage: 1 TABLET, 1X/DAY
     Dates: start: 2013
  3. NEXIUM [Concomitant]
     Active Substance: ESOMEPRAZOLE MAGNESIUM
     Indication: PROPHYLAXIS
     Dosage: UNK
  4. ESOMEPRAZOLE [Concomitant]
     Active Substance: ESOMEPRAZOLE
     Indication: PROPHYLAXIS
     Dosage: 20 MG, 1X/DAY (IN THE MORNINGS)
  5. ENBREL [Suspect]
     Active Substance: ETANERCEPT
     Indication: ANKYLOSING SPONDYLITIS
     Dosage: 50 MG, WEEKLY ON SATURDAYS
     Route: 058
     Dates: start: 20071102
  6. ENBREL [Suspect]
     Active Substance: ETANERCEPT
     Dosage: 50 MG, WEEKLY ON SATURDAYS
     Route: 058
  7. EFFERALGAN [Concomitant]
     Active Substance: ACETAMINOPHEN
     Indication: PAIN
     Dosage: UNK, AS NEEDED

REACTIONS (17)
  - Foot deformity [Recovered/Resolved]
  - Uterine disorder [Not Recovered/Not Resolved]
  - Inflammation [Recovered/Resolved]
  - Injection site pain [Recovered/Resolved]
  - Injection site reaction [Recovered/Resolved]
  - Eye disorder [Not Recovered/Not Resolved]
  - Diplopia [Not Recovered/Not Resolved]
  - Ovarian cyst [Recovered/Resolved]
  - Fallopian tube disorder [Recovered/Resolved]
  - Osteoarthritis [Not Recovered/Not Resolved]
  - Ear swelling [Unknown]
  - Injection site erythema [Recovered/Resolved]
  - Ankylosing spondylitis [Recovered/Resolved]
  - Pharyngeal oedema [Unknown]
  - Nasopharyngitis [Recovered/Resolved]
  - Vertigo [Not Recovered/Not Resolved]
  - Ovarian disorder [Recovered/Resolved]

NARRATIVE: CASE EVENT DATE: 2012
